FAERS Safety Report 4301607-2 (Version None)
Quarter: 2004Q1

REPORT INFORMATION
  Report Type: 
  Country: None (occurrence: None)
  Receive Date: 20040219
  Receipt Date: 20040212
  Transmission Date: 20041129
  Serious: Yes (Other)
  Sender: FDA-Public Use
  Company Number: FRWYE580313FEB04

PATIENT
  Age: 47 Year
  Sex: Male

DRUGS (1)
  1. EFFEXOR XR [Suspect]
     Indication: DEPRESSION
     Dosage: 37.5 MG 1X PER 1 DAY ORAL
     Route: 048

REACTIONS (2)
  - ATRIAL FIBRILLATION [None]
  - CONDITION AGGRAVATED [None]
